FAERS Safety Report 15557092 (Version 3)
Quarter: 2018Q4

REPORT INFORMATION
  Report Type: Report from Study
  Country: US (occurrence: US)
  Receive Date: 20181026
  Receipt Date: 20181220
  Transmission Date: 20190205
  Serious: Yes (Death, Other)
  Sender: FDA-Public Use
  Company Number: US-ADAMAS PHARMA, LLC-2018ADA02143

PATIENT
  Age: 80 Year
  Sex: Male
  Weight: 63.04 kg

DRUGS (14)
  1. GOCOVRI [Suspect]
     Active Substance: AMANTADINE
     Dosage: 274 MG, 1X/DAY AT BEDTIME
     Route: 048
     Dates: start: 20180817
  2. CARBIDOPA/LEVODOPA [Concomitant]
     Active Substance: CARBIDOPA\LEVODOPA
  3. CYANOCOBALAMIN. [Concomitant]
     Active Substance: CYANOCOBALAMIN
     Dosage: 500 ?G, 1X/DAY
     Route: 048
  4. IRBESARTAN. [Concomitant]
     Active Substance: IRBESARTAN
  5. LISINOPRIL. [Concomitant]
     Active Substance: LISINOPRIL
  6. OMEPRAZOLE. [Concomitant]
     Active Substance: OMEPRAZOLE
     Dosage: 20 MG, UP TO 1X/DAY
     Route: 048
  7. AMITIZA [Concomitant]
     Active Substance: LUBIPROSTONE
     Dosage: 8 ?G, AS DIRECTED ONCE OR TWICE A DAY
     Route: 048
  8. ASPIRIN LOW DELAYED RELEASE [Concomitant]
     Dosage: 81 MG, 1X/DAY
     Route: 048
  9. STALEVO 150 [Concomitant]
     Dosage: 2 TABLETS, 4X/DAY
     Route: 048
  10. AMLODIPINE [Concomitant]
     Active Substance: AMLODIPINE BESYLATE
     Dosage: 2.5 MG, AS NEEDED
     Dates: end: 201809
  11. MIRALAX [Concomitant]
     Active Substance: POLYETHYLENE GLYCOL 3350
     Dosage: 1 DOSAGE UNITS, 1X/DAY
  12. GOCOVRI [Suspect]
     Active Substance: AMANTADINE
     Indication: DYSKINESIA
     Dosage: 137 MG, 1X/DAY AT BEDTIME
     Route: 048
     Dates: start: 20180810, end: 20180816
  13. REQUIP [Concomitant]
     Active Substance: ROPINIROLE HYDROCHLORIDE
     Dosage: 0.5-1 MG AT BEDTIME AS NEEDED
  14. CYANOCOBALAMIN. [Concomitant]
     Active Substance: CYANOCOBALAMIN
     Dosage: 1000 ?G, 1X/DAY
     Route: 048

REACTIONS (14)
  - Intentional product misuse [Unknown]
  - Memory impairment [Unknown]
  - Gout [Unknown]
  - Choking [Unknown]
  - Weight decreased [Unknown]
  - Chromaturia [Unknown]
  - Parkinson^s disease [Fatal]
  - Mental disorder [Unknown]
  - Conjunctivitis [Unknown]
  - Asthenia [Unknown]
  - Hallucination [Not Recovered/Not Resolved]
  - Peripheral swelling [Unknown]
  - Hypersomnia [Unknown]
  - Insomnia [Unknown]

NARRATIVE: CASE EVENT DATE: 2018
